FAERS Safety Report 7740462-5 (Version None)
Quarter: 2011Q3

REPORT INFORMATION
  Report Type: 
  Country: None (occurrence: None)
  Receive Date: 20110909
  Receipt Date: 20110907
  Transmission Date: 20111222
  Serious: Yes (Disabling, Other)
  Sender: FDA-Public Use
  Company Number: JP-ABBOTT-10P-087-0688592-00

PATIENT
  Sex: Male

DRUGS (1)
  1. FENOFIBRATE [Suspect]
     Indication: DYSLIPIDAEMIA
     Route: 048
     Dates: start: 20100824, end: 20101022

REACTIONS (1)
  - HEPATIC FUNCTION ABNORMAL [None]
